FAERS Safety Report 23291707 (Version 3)
Quarter: 2024Q1

REPORT INFORMATION
  Report Type: Report from Study
  Country: US (occurrence: US)
  Receive Date: 20231213
  Receipt Date: 20240225
  Transmission Date: 20240409
  Serious: Yes (Other)
  Sender: FDA-Public Use
  Company Number: US-ALXN-A202304285

PATIENT
  Age: 86 Year
  Sex: Female

DRUGS (3)
  1. SOLIRIS [Suspect]
     Active Substance: ECULIZUMAB
     Indication: Myasthenia gravis
     Dosage: UNK
     Route: 065
     Dates: start: 20211108
  2. SOLIRIS [Suspect]
     Active Substance: ECULIZUMAB
     Dosage: UNK
     Route: 065
  3. PROLIA [Concomitant]
     Active Substance: DENOSUMAB
     Indication: Product used for unknown indication
     Dosage: UNK
     Route: 065

REACTIONS (17)
  - Renal impairment [Unknown]
  - Dysphagia [Recovering/Resolving]
  - Diplopia [Unknown]
  - Blood pressure increased [Unknown]
  - Blister [Unknown]
  - Skin wound [Unknown]
  - Muscle disorder [Unknown]
  - Vein disorder [Unknown]
  - Back pain [Not Recovered/Not Resolved]
  - Dyspnoea [Unknown]
  - Headache [Not Recovered/Not Resolved]
  - Rash [Recovering/Resolving]
  - Anxiety [Unknown]
  - Blood pressure fluctuation [Unknown]
  - Gastrointestinal disorder [Unknown]
  - Rosacea [Unknown]
  - Pustule [Unknown]

NARRATIVE: CASE EVENT DATE: 20230401
